FAERS Safety Report 10447787 (Version 2)
Quarter: 2014Q3

REPORT INFORMATION
  Report Type: Spontaneous
  Country: BR (occurrence: BR)
  Receive Date: 20140911
  Receipt Date: 20140911
  Transmission Date: 20150326
  Serious: Yes (Hospitalization, Other)
  Sender: FDA-Public Use
  Company Number: BR-PFIZER INC-2014197073

PATIENT
  Sex: Male

DRUGS (1)
  1. LYRICA [Suspect]
     Active Substance: PREGABALIN
     Indication: INTERVERTEBRAL DISC PROTRUSION
     Dosage: 150 MG, 1X/DAY
     Route: 048

REACTIONS (6)
  - Drug prescribing error [Unknown]
  - Intervertebral disc protrusion [Recovering/Resolving]
  - Bacterial infection [Recovering/Resolving]
  - Nosocomial infection [Recovering/Resolving]
  - Cardiac disorder [Recovering/Resolving]
  - Feeling abnormal [Not Recovered/Not Resolved]
